FAERS Safety Report 5381220-9 (Version None)
Quarter: 2007Q3

REPORT INFORMATION
  Report Type: 
  Country: None (occurrence: None)
  Receive Date: 20070706
  Receipt Date: 20070626
  Transmission Date: 20080115
  Serious: Yes (Hospitalization, Other)
  Sender: FDA-Public Use
  Company Number: DE-PFIZER INC-2007053591

PATIENT
  Age: 70 Year
  Sex: Female

DRUGS (3)
  1. BEXTRA [Suspect]
     Indication: SCIATICA
  2. TETRAZEPAM [Concomitant]
  3. FLUPIRTINE [Concomitant]

REACTIONS (9)
  - BODY TEMPERATURE INCREASED [None]
  - DERMATITIS EXFOLIATIVE [None]
  - DIARRHOEA [None]
  - HYPOTENSION [None]
  - LIP HAEMORRHAGE [None]
  - PRURITUS GENERALISED [None]
  - SWELLING FACE [None]
  - TACHYCARDIA [None]
  - VOMITING [None]
